FAERS Safety Report 19115428 (Version 1)
Quarter: 2021Q2

REPORT INFORMATION
  Report Type: Spontaneous
  Country: CA (occurrence: CA)
  Receive Date: 20210409
  Receipt Date: 20210409
  Transmission Date: 20210717
  Serious: Yes (Life-Threatening, Hospitalization)
  Sender: FDA-Public Use
  Company Number: CA-PFIZER INC-2021382740

PATIENT
  Age: 18 Year
  Sex: Male
  Weight: 73 kg

DRUGS (71)
  1. VINCRISTINE SULFATE. [Suspect]
     Active Substance: VINCRISTINE SULFATE
     Indication: LYMPHOMA
     Dosage: 0.6 MG
     Route: 042
  2. FLUDARABINE PHOSPHATE. [Suspect]
     Active Substance: FLUDARABINE PHOSPHATE
     Indication: BONE MARROW CONDITIONING REGIMEN
     Dosage: 50 MG
     Route: 042
  3. CALCIUM [Concomitant]
     Active Substance: CALCIUM
  4. FUROSEMIDE. [Concomitant]
     Active Substance: FUROSEMIDE
  5. JAKAVI [RUXOLITINIB] [Concomitant]
     Active Substance: RUXOLITINIB
  6. NICOTINE. [Concomitant]
     Active Substance: NICOTINE
  7. RANITIDINE. [Concomitant]
     Active Substance: RANITIDINE
  8. SODIUM [Concomitant]
     Active Substance: SODIUM
  9. VALGANCICLOVIR. [Concomitant]
     Active Substance: VALGANCICLOVIR
  10. VANCOMYCIN [Concomitant]
     Active Substance: VANCOMYCIN
  11. ACETAMINOPHEN. [Concomitant]
     Active Substance: ACETAMINOPHEN
  12. BUPIVACAINE. [Concomitant]
     Active Substance: BUPIVACAINE
  13. ESOMEPRAZOLE. [Concomitant]
     Active Substance: ESOMEPRAZOLE MAGNESIUM
  14. HYDROCORTISONE. [Concomitant]
     Active Substance: HYDROCORTISONE
  15. INSULIN [Concomitant]
     Active Substance: INSULIN NOS
  16. METHOTREXATE. [Concomitant]
     Active Substance: METHOTREXATE
  17. MYCAMINE [Concomitant]
     Active Substance: MICAFUNGIN SODIUM
  18. TACROLIMUS. [Concomitant]
     Active Substance: TACROLIMUS
  19. VALACYCLOVIR [Concomitant]
     Active Substance: VALACYCLOVIR HYDROCHLORIDE
  20. VENLAFAXINE HYDROCHLORIDE. [Concomitant]
     Active Substance: VENLAFAXINE HYDROCHLORIDE
  21. CYTARABINE. [Suspect]
     Active Substance: CYTARABINE
     Indication: LYMPHOMA
     Dosage: 4000 MG, 1 EVERY 12 HOURS
     Route: 042
  22. ETOPOSIDE. [Suspect]
     Active Substance: ETOPOSIDE
     Indication: LYMPHOMA
     Dosage: 120 MG
     Route: 042
  23. ETOPOSIDE. [Suspect]
     Active Substance: ETOPOSIDE
     Dosage: 100 MG
     Route: 042
  24. IFOSFAMIDE FOR INJECTION [Suspect]
     Active Substance: IFOSFAMIDE
     Indication: LYMPHOMA
     Dosage: 3000 MG
     Route: 042
  25. DOCUSATE SODIUM. [Concomitant]
     Active Substance: DOCUSATE SODIUM
  26. CYCLOPHOSPHAMIDE. [Suspect]
     Active Substance: CYCLOPHOSPHAMIDE
     Indication: BONE MARROW CONDITIONING REGIMEN
     Dosage: 1500 MG
     Route: 042
  27. CETIRIZINE [Concomitant]
     Active Substance: CETIRIZINE HYDROCHLORIDE
  28. HYDROMORPHONE [Concomitant]
     Active Substance: HYDROMORPHONE
  29. MELATONIN [Concomitant]
     Active Substance: MELATONIN
  30. METHYLPREDNISOLONE. [Concomitant]
     Active Substance: METHYLPREDNISOLONE
  31. ONDANSETRON [Concomitant]
     Active Substance: ONDANSETRON
  32. POLYETHYLENE GLYCOL [MACROGOL] [Concomitant]
     Active Substance: POLYETHYLENE GLYCOLS
  33. RABBIT ANTI HUMAN THYMOCYTE IMMUNOGLOBULIN [Concomitant]
     Active Substance: LAPINE T-LYMPHOCYTE IMMUNE GLOBULIN
  34. SODIUM PHOSPHATE [Concomitant]
     Active Substance: SODIUM PHOSPHATE
  35. ALLOPURINOL. [Concomitant]
     Active Substance: ALLOPURINOL
  36. CASPOFUNGIN [Concomitant]
     Active Substance: CASPOFUNGIN
  37. CEFTRIAXONE FOR INJECTION [Concomitant]
     Active Substance: CEFTRIAXONE
  38. CIPROFLOXACIN. [Concomitant]
     Active Substance: CIPROFLOXACIN
  39. DIPHENHYDRAMINE. [Concomitant]
     Active Substance: DIPHENHYDRAMINE
  40. MESNA. [Concomitant]
     Active Substance: MESNA
  41. PIMOZIDE. [Concomitant]
     Active Substance: PIMOZIDE
  42. POTASSIUM [Concomitant]
     Active Substance: POTASSIUM
  43. DOXORUBICIN HCL [Suspect]
     Active Substance: DOXORUBICIN HYDROCHLORIDE
     Indication: LYMPHOMA
     Dosage: 20 MG
     Route: 042
  44. ALTEPLASE. [Concomitant]
     Active Substance: ALTEPLASE
  45. AMITRIPTYLINE [Concomitant]
     Active Substance: AMITRIPTYLINE
  46. AMPHOTERICIN B. [Concomitant]
     Active Substance: AMPHOTERICIN B
  47. CAFFEINE. [Concomitant]
     Active Substance: CAFFEINE
  48. CHOLECALCIFEROL [Concomitant]
     Active Substance: CHOLECALCIFEROL
  49. FENTANYL. [Concomitant]
     Active Substance: FENTANYL
  50. METHADONE [Concomitant]
     Active Substance: METHADONE HYDROCHLORIDE
  51. PANTOPRAZOLE [Concomitant]
     Active Substance: PANTOPRAZOLE
  52. TRANEXAMIC ACID. [Concomitant]
     Active Substance: TRANEXAMIC ACID
  53. TRIMETHOPRIM SULFAMETHOXAZOLE [Concomitant]
     Active Substance: SULFAMETHOXAZOLE\TRIMETHOPRIM
  54. AMLODIPINE [Concomitant]
     Active Substance: AMLODIPINE BESYLATE
  55. CLONIDINE. [Concomitant]
     Active Substance: CLONIDINE
  56. DIAZEPAM. [Concomitant]
     Active Substance: DIAZEPAM
  57. LANSOPRAZOLE. [Concomitant]
     Active Substance: LANSOPRAZOLE
  58. LORAZEPAM. [Concomitant]
     Active Substance: LORAZEPAM
  59. MAGNESIUM [Concomitant]
     Active Substance: MAGNESIUM
  60. PIPERACILLIN/TAZOBACTAM [Concomitant]
     Active Substance: PIPERACILLIN SODIUM\TAZOBACTAM SODIUM
  61. RISPERIDONE. [Concomitant]
     Active Substance: RISPERIDONE
  62. URSODEOXYCHOLIC ACID [Concomitant]
     Active Substance: URSODIOL
  63. CYCLOPHOSPHAMIDE. [Suspect]
     Active Substance: CYCLOPHOSPHAMIDE
     Dosage: 4800 MG
     Route: 042
  64. CEFAZOLIN [Concomitant]
     Active Substance: CEFAZOLIN
  65. DIMENHYDRINATE. [Concomitant]
     Active Substance: DIMENHYDRINATE
  66. FOSCARNET SODIUM. [Concomitant]
     Active Substance: FOSCARNET SODIUM
     Route: 042
  67. GANCICLOVIR. [Concomitant]
     Active Substance: GANCICLOVIR
  68. GRANULOCYTE COLONY STIMULATING FACTOR [Concomitant]
     Active Substance: GRANULOCYTE COLONY-STIMULATING FACTOR NOS
  69. MEROPENEM. [Concomitant]
     Active Substance: MEROPENEM
  70. METOCLOPRAMIDE. [Concomitant]
     Active Substance: METOCLOPRAMIDE
  71. PREDNISONE. [Concomitant]
     Active Substance: PREDNISONE

REACTIONS (2)
  - Aplastic anaemia [Unknown]
  - Mucosal inflammation [Unknown]
